FAERS Safety Report 16951559 (Version 1)
Quarter: 2019Q4

REPORT INFORMATION
  Report Type: Spontaneous
  Country: UM (occurrence: UM)
  Receive Date: 20190903
  Receipt Date: 20190903
  Transmission Date: 20200122
  Serious: Yes (Death, Life-Threatening, Hospitalization)
  Sender: FDA-Public Use
  Company Number: None

PATIENT
  Age: 59 Year
  Sex: Female
  Weight: 92 kg

DRUGS (1)
  1. VANCOMYCIN 500MG X2 [Suspect]
     Active Substance: VANCOMYCIN
     Indication: STAPHYLOCOCCAL INFECTION
     Route: 042
     Dates: start: 20190816, end: 20190816

REACTIONS (3)
  - Dialysis [None]
  - Feeling hot [None]
  - Unresponsive to stimuli [None]

NARRATIVE: CASE EVENT DATE: 20190816
